FAERS Safety Report 7878455-X (Version None)
Quarter: 2011Q4

REPORT INFORMATION
  Report Type: 
  Country: None (occurrence: None)
  Receive Date: 20111012
  Receipt Date: 20110910
  Transmission Date: 20120403
  Serious: Yes (Other)
  Sender: FDA-Public Use
  Company Number: 040514

PATIENT
  Age: 57 Year
  Sex: Female
  Weight: 70 kg

DRUGS (5)
  1. KEPPRA [Suspect]
     Indication: EPILEPSY
     Dosage: (2000 MG ORAL), 300 MG, 08-SEP-2010: 2000 MG EVERY OTHER DAY ORAL)
     Route: 048
     Dates: start: 20101129
  2. KEPPRA [Suspect]
     Indication: EPILEPSY
     Dosage: (2000 MG ORAL), 300 MG, 08-SEP-2010: 2000 MG EVERY OTHER DAY ORAL)
     Route: 048
     Dates: start: 20100814
  3. ENTOCORT EC [Concomitant]
  4. ZONEGRAN [Concomitant]
  5. ATIVAN [Concomitant]

REACTIONS (2)
  - ANXIETY [None]
  - ABDOMINAL DISCOMFORT [None]
